FAERS Safety Report 5088448-6 (Version None)
Quarter: 2006Q3

REPORT INFORMATION
  Report Type: 
  Country: None (occurrence: None)
  Receive Date: 20060822
  Receipt Date: 20060810
  Transmission Date: 20061208
  Serious: Yes (Death)
  Sender: FDA-Public Use
  Company Number: 2006098615

PATIENT
  Age: 67 Year
  Sex: Male

DRUGS (5)
  1. MIGLITOL TABLET (MIGLITOL) [Suspect]
     Indication: DIABETES MELLITUS
     Dosage: 112.5 MG ORAL
     Route: 048
     Dates: start: 20060422, end: 20060701
  2. GLYBURIDE [Concomitant]
  3. LISINOPRIL [Concomitant]
  4. METFORMIN [Concomitant]
  5. EBRANTIL (URAPIDIL) [Concomitant]

REACTIONS (4)
  - ELECTROCARDIOGRAM T WAVE INVERSION [None]
  - EXTRASYSTOLES [None]
  - MYOCARDIAL INFARCTION [None]
  - SUDDEN DEATH [None]
